FAERS Safety Report 6484031-6 (Version None)
Quarter: 2009Q4

REPORT INFORMATION
  Report Type: 
  Country: None (occurrence: None)
  Receive Date: 20091209
  Receipt Date: 20091203
  Transmission Date: 20100525
  Serious: Yes (Hospitalization, Other)
  Sender: FDA-Public Use
  Company Number: AU-BAYER-200715348GDS

PATIENT
  Age: 61 Year
  Sex: Male
  Weight: 55 kg

DRUGS (19)
  1. SORAFENIB [Suspect]
     Indication: NON-SMALL CELL LUNG CANCER
     Dosage: AS USED: 400 MG
     Route: 048
     Dates: start: 20070904
  2. CARBOPLATIN [Suspect]
     Indication: NON-SMALL CELL LUNG CANCER
     Route: 042
  3. PACLITAXEL [Suspect]
     Indication: NON-SMALL CELL LUNG CANCER
     Route: 042
  4. ATIVAN [Concomitant]
     Indication: INSOMNIA
     Route: 048
     Dates: start: 20070221
  5. ASPIRIN [Concomitant]
     Indication: DRUG USE FOR UNKNOWN INDICATION
     Route: 065
     Dates: start: 20070913, end: 20070919
  6. ATROVENT [Concomitant]
     Indication: DRUG USE FOR UNKNOWN INDICATION
     Route: 065
     Dates: start: 20070913, end: 20070913
  7. LACTULOSE [Concomitant]
     Indication: DRUG USE FOR UNKNOWN INDICATION
     Route: 065
     Dates: start: 20070914
  8. LORAZEPAM [Concomitant]
     Indication: DRUG USE FOR UNKNOWN INDICATION
     Route: 065
     Dates: start: 20070913
  9. LINCOMYCIN HCL [Concomitant]
     Indication: DRUG USE FOR UNKNOWN INDICATION
     Route: 042
     Dates: start: 20070915
  10. TEMAZEPAM [Concomitant]
     Indication: DRUG USE FOR UNKNOWN INDICATION
     Route: 065
     Dates: start: 20070916
  11. ENDONE [Concomitant]
     Indication: DRUG USE FOR UNKNOWN INDICATION
     Dosage: TOTAL DAILY DOSE: 30 MG
     Route: 065
     Dates: start: 20070912, end: 20070916
  12. MORPHINE [Concomitant]
     Indication: DRUG USE FOR UNKNOWN INDICATION
     Dosage: AS USED: 2.5 - 5 MG
     Route: 065
     Dates: start: 20070912, end: 20070914
  13. METOCLOPRAMIDE [Concomitant]
     Indication: DRUG USE FOR UNKNOWN INDICATION
     Dosage: AS USED: 10-20 MG
     Route: 065
     Dates: start: 20070913, end: 20070914
  14. NORMAL SALINE [Concomitant]
     Indication: DRUG USE FOR UNKNOWN INDICATION
     Route: 065
     Dates: start: 20070914, end: 20070914
  15. NORMAL SALINE [Concomitant]
     Route: 065
     Dates: start: 20070915, end: 20070915
  16. NORMAL SALINE [Concomitant]
     Route: 065
     Dates: start: 20070916, end: 20070916
  17. AUGMENTIN '125' [Concomitant]
     Indication: DRUG USE FOR UNKNOWN INDICATION
     Route: 065
     Dates: start: 20070917, end: 20070919
  18. PARACETAMOL [Concomitant]
     Indication: DRUG USE FOR UNKNOWN INDICATION
     Dosage: TOTAL DAILY DOSE: 4 G
     Route: 065
     Dates: start: 20070913, end: 20070919
  19. HEPARIN [Concomitant]
     Indication: DRUG USE FOR UNKNOWN INDICATION
     Dosage: TOTAL DAILY DOSE: 10000 U
     Route: 065
     Dates: start: 20070912, end: 20070919

REACTIONS (1)
  - PNEUMOTHORAX [None]
